FAERS Safety Report 16690736 (Version 6)
Quarter: 2020Q4

REPORT INFORMATION
  Report Type: Spontaneous
  Country: JP (occurrence: JP)
  Receive Date: 20190811
  Receipt Date: 20201215
  Transmission Date: 20210113
  Serious: Yes (Hospitalization, Other)
  Sender: FDA-Public Use
  Company Number: PHJP2019JP010413

PATIENT
  Age: 71 Year
  Sex: Male
  Weight: 84.1 kg

DRUGS (10)
  1. HEPARINE CALCIUM [Concomitant]
     Active Substance: HEPARIN CALCIUM
     Dosage: UNK
     Route: 058
     Dates: start: 20191005, end: 20191029
  2. VOTRIENT [Suspect]
     Active Substance: PAZOPANIB HYDROCHLORIDE
     Dosage: 400 MG, QD
     Route: 048
     Dates: start: 20190508, end: 20190805
  3. HEPARINE CALCIUM [Concomitant]
     Active Substance: HEPARIN CALCIUM
     Dosage: 5000 IU/0.2ML (2 VIALS, IN THE MORNING AND EVENING)
     Route: 065
     Dates: start: 20191105
  4. NU-LOTAN [Concomitant]
     Active Substance: LOSARTAN POTASSIUM
     Indication: PRODUCT USED FOR UNKNOWN INDICATION
     Dosage: 25 MG, QD (EVENING
     Route: 065
     Dates: start: 20190819
  5. ZETIA [Concomitant]
     Active Substance: EZETIMIBE
     Indication: PRODUCT USED FOR UNKNOWN INDICATION
     Dosage: 10 MG, QD (EVENING)
     Route: 065
  6. AFINITOR [Concomitant]
     Active Substance: EVEROLIMUS
     Indication: RENAL CANCER RECURRENT
     Dosage: 10 MG, QD
     Route: 065
     Dates: start: 20191129, end: 20200117
  7. VOTRIENT [Suspect]
     Active Substance: PAZOPANIB HYDROCHLORIDE
     Indication: RENAL CELL CARCINOMA
     Dosage: 800 MG, QD
     Route: 048
     Dates: start: 20181015, end: 20181116
  8. VOTRIENT [Suspect]
     Active Substance: PAZOPANIB HYDROCHLORIDE
     Indication: METASTASES TO LYMPH NODES
     Dosage: 400 MG, QD
     Route: 048
     Dates: start: 20181117, end: 20190329
  9. MEVALOTIN [Concomitant]
     Active Substance: PRAVASTATIN SODIUM
     Indication: DYSLIPIDAEMIA
     Dosage: UNK
     Route: 048
     Dates: start: 2011
  10. HEPARINE CALCIUM [Concomitant]
     Active Substance: HEPARIN CALCIUM
     Indication: THROMBOSIS PROPHYLAXIS
     Dosage: UNK
     Route: 058
     Dates: start: 20190813, end: 20191029

REACTIONS (20)
  - Nephrotic syndrome [Not Recovered/Not Resolved]
  - Malaise [Unknown]
  - Metastases to lymph nodes [Unknown]
  - Oedema peripheral [Unknown]
  - Dermatitis [Unknown]
  - Platelet count decreased [Unknown]
  - Taste disorder [Unknown]
  - Palmar-plantar erythrodysaesthesia syndrome [Recovering/Resolving]
  - Generalised oedema [Unknown]
  - Fatigue [Unknown]
  - Kidney enlargement [Unknown]
  - Hypoalbuminaemia [Unknown]
  - Weight increased [Unknown]
  - Skin ulcer [Recovering/Resolving]
  - Hepatic function abnormal [Recovering/Resolving]
  - Glomerulonephritis membranous [Unknown]
  - Decreased appetite [Unknown]
  - Hypertension [Not Recovered/Not Resolved]
  - Malignant neoplasm progression [Unknown]
  - Protein urine present [Unknown]

NARRATIVE: CASE EVENT DATE: 20181022
